FAERS Safety Report 5321844-8 (Version None)
Quarter: 2007Q1

REPORT INFORMATION
  Report Type: 
  Country: None (occurrence: None)
  Receive Date: 20070215
  Receipt Date: 20061114
  Transmission Date: 20070707
  Serious: No
  Sender: FDA-Public Use
  Company Number: 200616559BWH

PATIENT
  Age: 57 Year
  Sex: Male
  Weight: 87.0906 kg

DRUGS (3)
  1. NEXAVAR [Suspect]
     Indication: RENAL CELL CARCINOMA STAGE UNSPECIFIED
     Dosage: 400 MG, BID, ORAL
     Route: 048
     Dates: start: 20060827
  2. WARFARIN SODIUM [Concomitant]
  3. METAGLIP [Concomitant]

REACTIONS (9)
  - ABDOMINAL PAIN [None]
  - ALOPECIA [None]
  - CONSTIPATION [None]
  - DIARRHOEA [None]
  - DRY SKIN [None]
  - FATIGUE [None]
  - FLATULENCE [None]
  - HYPERTENSION [None]
  - PAIN IN EXTREMITY [None]
